FAERS Safety Report 4627295-3 (Version None)
Quarter: 2005Q2

REPORT INFORMATION
  Report Type: 
  Country: None (occurrence: None)
  Receive Date: 20050405
  Receipt Date: 20020911
  Transmission Date: 20051028
  Serious: Yes (Hospitalization)
  Sender: FDA-Public Use
  Company Number: ES-BOEHRINGER INGELHEIM PHARM. INC.-2002-BP-04857BP

PATIENT
  Sex: Female
  Weight: 57 kg

DRUGS (9)
  1. MICARDIS [Suspect]
     Indication: CARDIOVASCULAR DISORDER
     Route: 048
     Dates: start: 20020101
  2. MICARDIS [Suspect]
     Indication: CEREBROVASCULAR ACCIDENT PROPHYLAXIS
  3. RAMIPRIL [Suspect]
     Indication: CARDIOVASCULAR DISORDER
     Route: 048
     Dates: start: 20020101
  4. RAMIPRIL [Suspect]
     Indication: CEREBROVASCULAR ACCIDENT PROPHYLAXIS
  5. PLAVIX [Concomitant]
  6. OMEPRAZOLE [Concomitant]
  7. DOXAZOSIN [Concomitant]
  8. DIURETICS [Concomitant]
  9. AMLODIPINE [Concomitant]

REACTIONS (3)
  - FEELING ABNORMAL [None]
  - RENAL FAILURE [None]
  - VOMITING [None]
